FAERS Safety Report 15146285 (Version 1)
Quarter: 2018Q3

REPORT INFORMATION
  Report Type: Spontaneous
  Country: AU (occurrence: AU)
  Receive Date: 20180715
  Receipt Date: 20180715
  Transmission Date: 20181010
  Serious: Yes (Other)
  Sender: FDA-Public Use
  Company Number: AU-TEVA-2018-AU-923890

PATIENT
  Sex: Female

DRUGS (2)
  1. IMATINIB [Suspect]
     Active Substance: IMATINIB
     Route: 065
  2. BOSENTAN. [Suspect]
     Active Substance: BOSENTAN
     Route: 065

REACTIONS (7)
  - Cellulitis [Unknown]
  - Atrial flutter [Unknown]
  - Pleural effusion [Unknown]
  - Polycythaemia [Unknown]
  - Condition aggravated [Unknown]
  - Multiple organ dysfunction syndrome [Unknown]
  - Lower respiratory tract infection [Unknown]
